FAERS Safety Report 7811224-5 (Version None)
Quarter: 2011Q4

REPORT INFORMATION
  Report Type: 
  Country: None (occurrence: None)
  Receive Date: 20111013
  Receipt Date: 20110930
  Transmission Date: 20120403
  Serious: No
  Sender: FDA-Public Use
  Company Number: US-BAYER-2011-093415

PATIENT
  Sex: Female

DRUGS (1)
  1. MENOSTAR [Suspect]
     Indication: HORMONE REPLACEMENT THERAPY

REACTIONS (1)
  - APPLICATION SITE IRRITATION [None]
